FAERS Safety Report 6603894-4 (Version None)
Quarter: 2010Q1

REPORT INFORMATION
  Report Type: 
  Country: None (occurrence: None)
  Receive Date: 20100226
  Receipt Date: 20090324
  Transmission Date: 20100710
  Serious: No
  Sender: FDA-Public Use
  Company Number: A0772537A

PATIENT
  Age: 26 Year
  Sex: Male

DRUGS (3)
  1. LAMICTAL CD [Suspect]
     Dosage: 25MG TWICE PER DAY
     Route: 048
     Dates: start: 20080522
  2. KLONOPIN [Concomitant]
  3. DILANTIN [Concomitant]

REACTIONS (1)
  - HYPERSENSITIVITY [None]
